FAERS Safety Report 9064391 (Version 1)
Quarter: 2013Q1

REPORT INFORMATION
  Report Type: Spontaneous
  Country: IT (occurrence: IT)
  Receive Date: 20130213
  Receipt Date: 20130213
  Transmission Date: 20140127
  Serious: Yes (Hospitalization, Other)
  Sender: FDA-Public Use
  Company Number: IT-PFIZER INC-2012140795

PATIENT
  Age: 55 Year
  Sex: Female

DRUGS (4)
  1. XANAX [Suspect]
     Dosage: 15 MG, TOTAL DOSE (TOOK ONE BOTTLE)
     Route: 048
     Dates: start: 20120309, end: 20120309
  2. LEXOTAN [Suspect]
     Dosage: 50 MG, TOTAL DOSE (TOOK ONE BOTTLE)
     Route: 048
     Dates: start: 20120309, end: 20120309
  3. GABAPENTIN [Concomitant]
     Indication: ANXIETY
     Dosage: UNK
  4. SEREUPIN [Concomitant]
     Indication: ANXIETY
     Dosage: UNK

REACTIONS (2)
  - Drug abuse [Recovering/Resolving]
  - Sopor [Recovering/Resolving]
